FAERS Safety Report 9665087 (Version 2)
Quarter: 2013Q4

REPORT INFORMATION
  Report Type: Spontaneous
  Country: US (occurrence: US)
  Receive Date: 20131101
  Receipt Date: 20131107
  Transmission Date: 20140711
  Serious: No
  Sender: FDA-Public Use
  Company Number: US-009507513-1310USA011175

PATIENT
  Sex: Female

DRUGS (3)
  1. PROVENTIL [Suspect]
     Dosage: UNK, PRN
     Route: 055
  2. ALBUTEROL SULFATE [Concomitant]
     Dosage: UNK
  3. CORTICOSTEROIDS (UNSPECIFIED) [Concomitant]
     Indication: ASTHMA
     Dosage: UNK, QD

REACTIONS (4)
  - Drug administration error [Unknown]
  - Drug ineffective [Unknown]
  - Product quality issue [Unknown]
  - Therapeutic response decreased [Unknown]
